FAERS Safety Report 8780505 (Version 1)
Quarter: 2012Q4

REPORT INFORMATION
  Report Type: Spontaneous
  Country: US (occurrence: None)
  Receive Date: 20120829
  Receipt Date: 20120829
  Transmission Date: 20130627
  Serious: Yes (Other)
  Sender: FDA-Public Use
  Company Number: DKLU1084099

PATIENT
  Age: 18 Month
  Sex: Male

DRUGS (1)
  1. SABRIL [Suspect]
     Indication: INFANTILE SPASMS
     Dosage: Therapy Dates:  at 6 months of age

REACTIONS (4)
  - Visual impairment [None]
  - Photophobia [None]
  - Convulsion [None]
  - Retinogram abnormal [None]
